FAERS Safety Report 24952523 (Version 2)
Quarter: 2025Q1

REPORT INFORMATION
  Report Type: Report from Study
  Country: US (occurrence: US)
  Receive Date: 20250210
  Receipt Date: 20250225
  Transmission Date: 20250408
  Serious: Yes (Other)
  Sender: ABBVIE
  Company Number: US-ABBVIE-6124359

PATIENT
  Age: 30 Year
  Sex: Female
  Weight: 81 kg

DRUGS (4)
  1. RINVOQ [Suspect]
     Active Substance: UPADACITINIB
     Indication: Systemic lupus erythematosus
     Dosage: FORM STRENGTH 15MG
     Route: 048
     Dates: start: 20250213
  2. RINVOQ [Suspect]
     Active Substance: UPADACITINIB
     Indication: Systemic lupus erythematosus
     Dosage: FORM STRENGTH 15MG
     Route: 048
     Dates: start: 202412, end: 202501
  3. RINVOQ [Suspect]
     Active Substance: UPADACITINIB
     Indication: Systemic lupus erythematosus
     Dosage: FORM STRENGTH 15MG
     Route: 048
     Dates: start: 202501, end: 20250206
  4. TYLENOL [Concomitant]
     Active Substance: ACETAMINOPHEN
     Indication: Pain

REACTIONS (3)
  - Psoriasis [Recovering/Resolving]
  - Purulent discharge [Recovered/Resolved]
  - Inappropriate schedule of product administration [Recovered/Resolved]

NARRATIVE: CASE EVENT DATE: 20250101
